FAERS Safety Report 14950110 (Version 1)
Quarter: 2018Q2

REPORT INFORMATION
  Report Type: Spontaneous
  Country: US (occurrence: US)
  Receive Date: 20180530
  Receipt Date: 20180530
  Transmission Date: 20180711
  Serious: Yes (Death)
  Sender: FDA-Public Use
  Company Number: US-INSYS THERAPEUTICS, INC-INS201805-000196

PATIENT
  Age: 35 Year
  Sex: Male
  Weight: 77 kg

DRUGS (3)
  1. CHLORDIAZEPOXIDE. [Suspect]
     Active Substance: CHLORDIAZEPOXIDE
  2. DRONABINOL. [Suspect]
     Active Substance: DRONABINOL
     Indication: PRODUCT USED FOR UNKNOWN INDICATION
  3. NORDIAZEPAM [Suspect]
     Active Substance: NORDAZEPAM

REACTIONS (1)
  - Accidental overdose [Fatal]
